FAERS Safety Report 5046543-1 (Version None)
Quarter: 2006Q3

REPORT INFORMATION
  Report Type: 
  Country: None (occurrence: None)
  Receive Date: 20060705
  Receipt Date: 20060705
  Transmission Date: 20061208
  Serious: No
  Sender: FDA-Public Use
  Company Number: None

PATIENT
  Sex: Female

DRUGS (3)
  1. FENTANYL TRANSDERMAL SYSTEM [Suspect]
     Indication: COMPRESSION FRACTURE
     Dosage: 75 MCG   Q 2 1/2 DAY   DERMAL
     Route: 062
  2. FENTANYL TRANSDERMAL SYSTEM [Suspect]
     Indication: OSTEOPOROSIS
     Dosage: 75 MCG   Q 2 1/2 DAY   DERMAL
     Route: 062
  3. FENTANYL TRANSDERMAL SYSTEM [Suspect]
     Indication: PAIN
     Dosage: 75 MCG   Q 2 1/2 DAY   DERMAL
     Route: 062

REACTIONS (4)
  - ABNORMAL BEHAVIOUR [None]
  - MOBILITY DECREASED [None]
  - PERFORMANCE STATUS DECREASED [None]
  - PHARMACEUTICAL PRODUCT COMPLAINT [None]
